FAERS Safety Report 23724773 (Version 2)
Quarter: 2025Q3

REPORT INFORMATION
  Report Type: Spontaneous
  Country: AF (occurrence: AF)
  Receive Date: 20240409
  Receipt Date: 20250916
  Transmission Date: 20251020
  Serious: Yes (Hospitalization)
  Sender: JOHNSON AND JOHNSON
  Company Number: AF-JNJFOC-20240411156

PATIENT
  Age: 28 Year
  Sex: Female
  Weight: 39 kg

DRUGS (5)
  1. BEDAQUILINE [Suspect]
     Active Substance: BEDAQUILINE
     Indication: Tuberculosis
     Route: 048
     Dates: start: 20221114, end: 20240401
  2. ETHIONAMIDE [Concomitant]
     Active Substance: ETHIONAMIDE
     Indication: Tuberculosis
     Route: 048
     Dates: start: 20221114, end: 20240401
  3. CLOFAZIMINE [Concomitant]
     Active Substance: CLOFAZIMINE
     Indication: Tuberculosis
     Route: 048
     Dates: start: 20221114, end: 20240401
  4. LINEZOLID [Concomitant]
     Active Substance: LINEZOLID
     Indication: Tuberculosis
     Route: 048
     Dates: start: 20221114, end: 20240401
  5. DELAMANID [Concomitant]
     Active Substance: DELAMANID
     Indication: Tuberculosis
     Route: 048
     Dates: start: 20221114, end: 20240401

REACTIONS (4)
  - Pulmonary oedema [Unknown]
  - Dyspnoea [Unknown]
  - Asthenia [Unknown]
  - Vomiting [Unknown]

NARRATIVE: CASE EVENT DATE: 20240401
